FAERS Safety Report 6266049-1 (Version None)
Quarter: 2009Q3

REPORT INFORMATION
  Report Type: 
  Country: None (occurrence: None)
  Receive Date: 20090713
  Receipt Date: 20090629
  Transmission Date: 20100115
  Serious: Yes (Hospitalization)
  Sender: FDA-Public Use
  Company Number: US-ELI_LILLY_AND_COMPANY-US200906007032

PATIENT
  Sex: Female

DRUGS (8)
  1. CYMBALTA [Suspect]
     Dates: start: 20070101
  2. REBIF /NET/ [Concomitant]
     Indication: MULTIPLE SCLEROSIS
     Dosage: 44 UG, 3/W
     Route: 058
     Dates: start: 20070517
  3. BACLOFEN [Concomitant]
     Indication: MUSCLE SPASMS
     Dosage: 10 MG, 3/D
  4. VICODIN [Concomitant]
     Indication: PAIN
     Dosage: UNK, 4/D
  5. XANAX [Concomitant]
     Indication: ANXIETY
     Dosage: 2 MG, 4/D
  6. ADDERALL 10 [Concomitant]
     Indication: FATIGUE
     Dosage: UNK, 2/D
  7. LYRICA [Concomitant]
     Indication: FIBROMYALGIA
     Dosage: 75 MG, 3/D
  8. LYRICA [Concomitant]
     Dosage: 150 MG, EACH EVENING

REACTIONS (4)
  - DRUG TOXICITY [None]
  - INFECTION [None]
  - MULTIPLE SCLEROSIS [None]
  - SKIN LESION [None]
